FAERS Safety Report 12237116 (Version 1)
Quarter: 2016Q2

REPORT INFORMATION
  Report Type: Spontaneous
  Country: US (occurrence: None)
  Receive Date: 20160404
  Receipt Date: 20160404
  Transmission Date: 20160815
  Serious: Yes (Life-Threatening, Hospitalization, Disabling)
  Sender: FDA-Public Use
  Company Number: None

PATIENT
  Age: 36 Year
  Sex: Female
  Weight: 52.62 kg

DRUGS (9)
  1. SERTRALINE [Concomitant]
     Active Substance: SERTRALINE HYDROCHLORIDE
  2. BENZTROPINE [Concomitant]
     Active Substance: BENZTROPINE
  3. LORATADINE. [Concomitant]
     Active Substance: LORATADINE
  4. ABILIFY [Suspect]
     Active Substance: ARIPIPRAZOLE
     Indication: PRODUCT USED FOR UNKNOWN INDICATION
     Dosage: INJECTION ONCE A.M. GIVEN INTO/UNDER THE SKIN
     Route: 058
  5. HALDOL [Suspect]
     Active Substance: HALOPERIDOL
  6. BUPROPION. [Concomitant]
     Active Substance: BUPROPION
  7. BENADRYL [Concomitant]
     Active Substance: DIPHENHYDRAMINE HYDROCHLORIDE
  8. BROMOCRIPTIN [Concomitant]
  9. RISPERDAL [Suspect]
     Active Substance: RISPERIDONE

REACTIONS (5)
  - Muscle twitching [None]
  - Dystonia [None]
  - Impaired work ability [None]
  - Eye movement disorder [None]
  - Visual impairment [None]

NARRATIVE: CASE EVENT DATE: 20101001
